FAERS Safety Report 4426863-1 (Version None)
Quarter: 2004Q3

REPORT INFORMATION
  Report Type: 
  Country: None (occurrence: None)
  Receive Date: 20040811
  Receipt Date: 20040727
  Transmission Date: 20050211
  Serious: Yes (Hospitalization, Other)
  Sender: FDA-Public Use
  Company Number: JP_040703982

PATIENT
  Age: 1 Day
  Weight: 3 kg

DRUGS (1)
  1. ZYPREXA [Suspect]
     Dates: start: 20031101

REACTIONS (8)
  - BLOOD AMINO ACID LEVEL DECREASED [None]
  - CIRCULATORY FAILURE NEONATAL [None]
  - DRUG EXPOSURE DURING PREGNANCY [None]
  - FEEDING PROBLEM IN NEWBORN [None]
  - HAEMATEMESIS [None]
  - MECONIUM STAIN [None]
  - NEONATAL DISORDER [None]
  - VOMITING NEONATAL [None]
